FAERS Safety Report 5818916-8 (Version None)
Quarter: 2008Q3

REPORT INFORMATION
  Report Type: 
  Country: None (occurrence: None)
  Receive Date: 20080717
  Receipt Date: 20080708
  Transmission Date: 20090109
  Serious: Yes (Hospitalization)
  Sender: FDA-Public Use
  Company Number: CERZ-1000256

PATIENT
  Age: 3 Year
  Sex: Male
  Weight: 8 kg

DRUGS (1)
  1. CEREZYME [Suspect]
     Indication: GAUCHER'S DISEASE
     Dosage: 1600 IU, Q2W, INTRAVENOUS
     Route: 042
     Dates: start: 20060821

REACTIONS (4)
  - ACCIDENTAL EXPOSURE [None]
  - DYSPNOEA [None]
  - INFECTION [None]
  - INTERSTITIAL LUNG DISEASE [None]
